FAERS Safety Report 10811459 (Version 1)
Quarter: 2015Q1

REPORT INFORMATION
  Report Type: Report from Study
  Country: US (occurrence: US)
  Receive Date: 20150217
  Receipt Date: 20150217
  Transmission Date: 20150721
  Serious: No
  Sender: FDA-Public Use
  Company Number: US-ABBVIE-14K-163-1212648-00

PATIENT
  Age: 58 Year
  Sex: Female

DRUGS (2)
  1. HUMIRA [Suspect]
     Active Substance: ADALIMUMAB
     Indication: PRODUCT USED FOR UNKNOWN INDICATION
     Dates: start: 2013, end: 2013
  2. HUMIRA [Suspect]
     Active Substance: ADALIMUMAB
     Dates: start: 20140309

REACTIONS (6)
  - Rash papular [Unknown]
  - Rash pruritic [Unknown]
  - Urticaria [Unknown]
  - Rash pruritic [Unknown]
  - Urticaria [Unknown]
  - Rash papular [Unknown]

NARRATIVE: CASE EVENT DATE: 2013
